FAERS Safety Report 17850032 (Version 1)
Quarter: 2020Q2

REPORT INFORMATION
  Report Type: Spontaneous
  Country: US (occurrence: US)
  Receive Date: 20200602
  Receipt Date: 20200602
  Transmission Date: 20200714
  Serious: No
  Sender: FDA-Public Use
  Company Number: US-GLAXOSMITHKLINE-US2020090897

PATIENT
  Age: 80 Year
  Sex: Male

DRUGS (2)
  1. VOLTAREN [Suspect]
     Active Substance: DICLOFENAC SODIUM
     Indication: PRURITUS
     Dosage: UNK
     Dates: start: 2012
  2. VOLTAREN [Suspect]
     Active Substance: DICLOFENAC SODIUM
     Indication: ARTHRITIS

REACTIONS (2)
  - Off label use [Unknown]
  - Product use in unapproved indication [Unknown]

NARRATIVE: CASE EVENT DATE: 2012
